FAERS Safety Report 7738038-9 (Version None)
Quarter: 2011Q3

REPORT INFORMATION
  Report Type: 
  Country: None (occurrence: None)
  Receive Date: 20110908
  Receipt Date: 20110901
  Transmission Date: 20111222
  Serious: Yes (Hospitalization)
  Sender: FDA-Public Use
  Company Number: KR-B.I. PHARMACEUTICALS,INC./RIDGEFIELD-2011-BP-19620BP

PATIENT
  Sex: Female
  Weight: 73 kg

DRUGS (1)
  1. ATROVENT [Suspect]
     Indication: IDIOPATHIC PULMONARY FIBROSIS
     Route: 048

REACTIONS (1)
  - PNEUMONIA [None]
